FAERS Safety Report 5055490-0 (Version None)
Quarter: 2006Q3

REPORT INFORMATION
  Report Type: 
  Country: None (occurrence: None)
  Receive Date: 20060717
  Receipt Date: 20060717
  Transmission Date: 20061208
  Serious: Yes (Life-Threatening)
  Sender: FDA-Public Use
  Company Number: None

PATIENT
  Age: 70 Year
  Sex: Female
  Weight: 49.8957 kg

DRUGS (8)
  1. LEVOFLOXACIN [Suspect]
     Indication: INFECTION
     Dosage: 250 G IV Q24H
     Route: 042
     Dates: start: 20060319, end: 20060320
  2. ACTONEL [Concomitant]
  3. ADVAIR DISKUS 100/50 [Concomitant]
  4. HYDROCHLOROTHIAZIDE [Concomitant]
  5. PLETAL [Concomitant]
  6. ENALAPRIL MALEATE [Concomitant]
  7. SPIRIVA [Concomitant]
  8. KYTRIL [Concomitant]

REACTIONS (1)
  - ANGIONEUROTIC OEDEMA [None]
